FAERS Safety Report 11696993 (Version 1)
Quarter: 2015Q4

REPORT INFORMATION
  Report Type: Spontaneous
  Country: CA (occurrence: CA)
  Receive Date: 20151104
  Receipt Date: 20151104
  Transmission Date: 20160304
  Serious: Yes (Death, Hospitalization)
  Sender: FDA-Public Use
  Company Number: CA-ACTELION-A-NJ2015-126229

PATIENT
  Age: 36 Year
  Sex: Female
  Weight: 58 kg

DRUGS (25)
  1. LOVENOX [Suspect]
     Active Substance: ENOXAPARIN SODIUM
     Indication: DEEP VEIN THROMBOSIS
     Dosage: 58 MG, BID
     Route: 058
     Dates: start: 20150929, end: 20151003
  2. OXYGEN. [Concomitant]
     Active Substance: OXYGEN
     Dosage: 6 L/MIN, UNK
     Route: 045
     Dates: start: 20150918, end: 20151019
  3. ACETAMINOPHEN. [Concomitant]
     Active Substance: ACETAMINOPHEN
     Dosage: UNK, Q6HRS PRN
     Dates: start: 20130523
  4. OXYGEN. [Concomitant]
     Active Substance: OXYGEN
     Indication: PULMONARY ARTERIAL HYPERTENSION
     Dosage: 3 L/MIN, UNK
     Route: 045
     Dates: start: 20120401, end: 20150918
  5. LASIX [Concomitant]
     Active Substance: FUROSEMIDE
     Dosage: 100 MG, QD
     Route: 042
     Dates: start: 20151002
  6. HYCODAN [Concomitant]
     Active Substance: HOMATROPINE METHYLBROMIDE\HYDROCODONE BITARTRATE
     Indication: COUGH
     Dosage: 5-10 MG, PRN
  7. OPSUMIT [Suspect]
     Active Substance: MACITENTAN
     Indication: PULMONARY ARTERIAL HYPERTENSION
     Dosage: 10 MG, QD
     Route: 048
     Dates: start: 20141107, end: 20151019
  8. CARIPUL [Suspect]
     Active Substance: EPOPROSTENOL
     Dosage: 20 NG/KG, PER MIN
     Route: 042
     Dates: start: 20150928, end: 20151019
  9. ALESSE 28 [Concomitant]
     Active Substance: ETHINYL ESTRADIOL\LEVONORGESTREL
     Dosage: 0.10 MG, QD
     Dates: start: 201206
  10. MAXERAN [Concomitant]
     Active Substance: METOCLOPRAMIDE HYDROCHLORIDE
     Dosage: 10 MG, Q6HRS PRN
     Dates: start: 20150918
  11. ATIVAN [Concomitant]
     Active Substance: LORAZEPAM
     Dosage: 0.5 MG, QD
     Dates: start: 20150923, end: 20150925
  12. FLONASE [Concomitant]
     Active Substance: FLUTICASONE PROPIONATE
     Dosage: 2 SPRAYS PER NOSTRIL, PRN
     Dates: start: 201111
  13. MAGNESIUM SULFATE. [Concomitant]
     Active Substance: MAGNESIUM SULFATE
     Dosage: 5 G, OVER 5 HOURS
     Route: 042
     Dates: start: 20150919, end: 20150919
  14. ADCIRCA [Concomitant]
     Active Substance: TADALAFIL
     Indication: PULMONARY ARTERIAL HYPERTENSION
     Dosage: 40 MG, QD
     Dates: start: 20150115
  15. MOMETASONE FUROATE. [Concomitant]
     Active Substance: MOMETASONE FUROATE
     Indication: COUGH
     Dosage: 2 UNK, TID
     Route: 055
     Dates: start: 20150819
  16. GRAVOL [Concomitant]
     Active Substance: DIMENHYDRINATE
     Dosage: 25 MG, Q6HRS PRN
     Dates: start: 20130513
  17. PANTOLOC [Concomitant]
     Active Substance: PANTOPRAZOLE SODIUM
     Dosage: 40 MG, QD
     Dates: start: 20130817
  18. CARIPUL [Suspect]
     Active Substance: EPOPROSTENOL
     Indication: PULMONARY ARTERIAL HYPERTENSION
     Dosage: 2 NG/KG, PER MIN
     Route: 042
     Dates: start: 20150918
  19. LASIX [Concomitant]
     Active Substance: FUROSEMIDE
     Indication: PULMONARY ARTERIAL HYPERTENSION
     Dosage: 60 MG, QD
     Route: 048
     Dates: start: 20150829, end: 20150927
  20. LASIX [Concomitant]
     Active Substance: FUROSEMIDE
     Dosage: 20 MG, QD
     Route: 042
     Dates: start: 20150927, end: 20150927
  21. LASIX [Concomitant]
     Active Substance: FUROSEMIDE
     Dosage: 60 MG, QD
     Route: 042
     Dates: start: 20150928, end: 20150930
  22. LASIX [Concomitant]
     Active Substance: FUROSEMIDE
     Dosage: 80 MG, QD
     Route: 042
     Dates: start: 20150930, end: 20151002
  23. POTASSIUM CHLORIDE. [Concomitant]
     Active Substance: POTASSIUM CHLORIDE
     Dosage: 1500 MG, BID
     Route: 048
     Dates: start: 20150822
  24. LOPERAMIDE [Concomitant]
     Active Substance: LOPERAMIDE
     Dosage: 2 MG, PRN
     Route: 048
     Dates: start: 20150815
  25. FORMOTEROL [Concomitant]
     Active Substance: FORMOTEROL
     Indication: COUGH
     Dosage: 5 MCG, TID
     Route: 055
     Dates: start: 20150819

REACTIONS (19)
  - Dyspnoea [Unknown]
  - Deep vein thrombosis [Unknown]
  - Hypomagnesaemia [Unknown]
  - Disease progression [Fatal]
  - Cardiac arrest [Fatal]
  - Cough [Unknown]
  - Diarrhoea [Unknown]
  - Pulmonary haemorrhage [Recovered/Resolved]
  - Venous pressure jugular increased [Unknown]
  - Haemoptysis [Recovered/Resolved]
  - Liver function test abnormal [Unknown]
  - Anxiety [Unknown]
  - Pulmonary arterial hypertension [Fatal]
  - Oedema peripheral [Unknown]
  - Acute kidney injury [Unknown]
  - Right ventricular failure [Unknown]
  - Tachycardia [Unknown]
  - Oxygen saturation decreased [Unknown]
  - Transplant evaluation [Unknown]

NARRATIVE: CASE EVENT DATE: 201509
